FAERS Safety Report 15195215 (Version 3)
Quarter: 2018Q3

REPORT INFORMATION
  Report Type: Spontaneous
  Country: JP (occurrence: JP)
  Receive Date: 20180725
  Receipt Date: 20180815
  Transmission Date: 20181010
  Serious: Yes (Other)
  Sender: FDA-Public Use
  Company Number: JP-ABBVIE-18P-087-2429877-00

PATIENT
  Sex: Male

DRUGS (1)
  1. LEUPRORELIN ACETATE [Suspect]
     Active Substance: LEUPROLIDE ACETATE
     Indication: PRODUCT USED FOR UNKNOWN INDICATION
     Dosage: UNK
     Route: 058

REACTIONS (9)
  - Rectourethral fistula [Unknown]
  - Anaemia [Unknown]
  - Scrotal oedema [Unknown]
  - Urethral stenosis [Unknown]
  - Calculus prostatic [Unknown]
  - Urinary retention [Unknown]
  - Urinary tract infection [Unknown]
  - Urinary incontinence [Unknown]
  - Erectile dysfunction [Unknown]
